FAERS Safety Report 4546213-X (Version None)
Quarter: 2005Q1

REPORT INFORMATION
  Report Type: 
  Country: None (occurrence: None)
  Receive Date: 20050103
  Receipt Date: 20041220
  Transmission Date: 20050727
  Serious: Yes (Death, Hospitalization, Other)
  Sender: FDA-Public Use
  Company Number: 2004114276

PATIENT
  Sex: Female

DRUGS (12)
  1. SORTIS (ATORVASTATIN) [Suspect]
     Indication: ILL-DEFINED DISORDER
     Dosage: 20 MG (20 MG, DAILY), ORAL
     Route: 048
     Dates: end: 20020331
  2. NORVASC [Suspect]
     Indication: ILL-DEFINED DISORDER
     Dosage: 10 MG (10 MG, DAILY), ORAL
     Route: 048
     Dates: end: 20020331
  3. VINCRISTINE [Suspect]
     Indication: ANAPLASTIC LARGE CELL LYMPHOMA T- AND NULL-CELL TYPES REFRACTORY
     Dosage: INTRAVENOUS
     Route: 042
     Dates: start: 20020116, end: 20020312
  4. CITALOPRAM [Suspect]
     Indication: ILL-DEFINED DISORDER
     Dosage: 40 MG, ORAL
     Route: 048
     Dates: start: 20020101, end: 20020331
  5. VASERETIC [Suspect]
     Indication: ILL-DEFINED DISORDER
     Dosage: 12.5/20  (DAILY INTERVAL: DAILY), ORAL
     Route: 048
     Dates: end: 20020331
  6. ESTROGENS CONJUGATD (ESTROGENS CONJUGATED) [Suspect]
     Indication: ILL-DEFINED DISORDER
     Dosage: 0.625 (0.625 MG, DAILY INTERVAL: DAILY), ORAL
     Route: 048
     Dates: end: 20020331
  7. METOPROLOL SUCCINATE [Concomitant]
  8. PHENPROCOUMON (PHENPROCOUMON) [Concomitant]
  9. CYCLOPHOSPHAMIDE [Concomitant]
  10. DOXORUBICIN HCL [Concomitant]
  11. PREDNISOLONE [Concomitant]
  12. ROSIGLITAZONE MALEATE [Concomitant]

REACTIONS (29)
  - ARTERIOSCLEROSIS [None]
  - BONE MARROW DEPRESSION [None]
  - CARDIOMEGALY [None]
  - CORONARY ARTERY ATHEROSCLEROSIS [None]
  - CORONARY ARTERY STENOSIS [None]
  - DIARRHOEA [None]
  - DILATATION ATRIAL [None]
  - EXTRAMEDULLARY HAEMOPOIESIS [None]
  - GASTRIC MUCOSAL LESION [None]
  - GENERAL PHYSICAL HEALTH DETERIORATION [None]
  - GLOMERULOSCLEROSIS [None]
  - HEPATIC FAILURE [None]
  - HEPATIC NECROSIS [None]
  - ISCHAEMIC HEPATITIS [None]
  - LOSS OF CONSCIOUSNESS [None]
  - LYMPHOMA [None]
  - METASTASES TO LIVER [None]
  - MUSCLE SPASMS [None]
  - MYOCARDIAL FIBROSIS [None]
  - NERVOUS SYSTEM DISORDER [None]
  - PANCREATIC CYST [None]
  - PERICARDIAL FIBROSIS [None]
  - PLEURAL EFFUSION [None]
  - PULMONARY CONGESTION [None]
  - PULMONARY OEDEMA [None]
  - SCAR [None]
  - SPLEEN DISORDER [None]
  - SYNCOPE [None]
  - VOMITING [None]
